FAERS Safety Report 5116349-3 (Version None)
Quarter: 2006Q3

REPORT INFORMATION
  Report Type: 
  Country: None (occurrence: None)
  Receive Date: 20060927
  Receipt Date: 20051025
  Transmission Date: 20061208
  Serious: Yes (Hospitalization, Other)
  Sender: FDA-Public Use
  Company Number: FR-ABBOTT-05P-056-0315165-00

PATIENT
  Age: 46 Year
  Sex: Male
  Weight: 65 kg

DRUGS (11)
  1. NORVIR [Suspect]
     Indication: HIV INFECTION
     Route: 048
     Dates: start: 20040201, end: 20050725
  2. NORVIR [Suspect]
     Dates: end: 20040131
  3. BACTRIM [Interacting]
     Indication: DRUG USE FOR UNKNOWN INDICATION
     Route: 048
     Dates: end: 20050725
  4. PACLITAXEL [Interacting]
     Indication: LUNG NEOPLASM MALIGNANT
     Route: 042
     Dates: start: 20050718, end: 20050718
  5. SAQUINAVIR [Interacting]
     Indication: DRUG USE FOR UNKNOWN INDICATION
     Route: 048
     Dates: start: 20040201, end: 20050725
  6. CARBOPLATIN [Suspect]
     Indication: LUNG NEOPLASM MALIGNANT
     Route: 048
     Dates: start: 20050718, end: 20050718
  7. DIDANOSINE [Interacting]
     Indication: DRUG USE FOR UNKNOWN INDICATION
     Route: 048
     Dates: start: 20040201, end: 20050725
  8. DIDANOSINE [Interacting]
     Dates: end: 20040131
  9. EFAVIRENZ [Interacting]
     Indication: DRUG USE FOR UNKNOWN INDICATION
     Route: 048
     Dates: start: 20040201, end: 20050725
  10. ONDANSETRON [Concomitant]
     Indication: DRUG USE FOR UNKNOWN INDICATION
     Route: 042
  11. NEULASTA [Concomitant]
     Indication: LUNG NEOPLASM MALIGNANT
     Dates: start: 20050718

REACTIONS (19)
  - ANAEMIA [None]
  - ANAL ULCER [None]
  - DRUG INTERACTION [None]
  - DYSPHAGIA [None]
  - GENERAL PHYSICAL HEALTH DETERIORATION [None]
  - HYPOKALAEMIA [None]
  - HYPONATRAEMIA [None]
  - LEUKOPENIA [None]
  - LUNG NEOPLASM MALIGNANT [None]
  - METASTASES TO LIVER [None]
  - MYCOSIS FUNGOIDES [None]
  - NEUTROPENIA [None]
  - ORAL CANDIDIASIS [None]
  - PYREXIA [None]
  - RALES [None]
  - RENAL FAILURE [None]
  - SINUS TACHYCARDIA [None]
  - TACHYPNOEA [None]
  - THROMBOCYTOPENIA [None]
